FAERS Safety Report 21089162 (Version 1)
Quarter: 2022Q3

REPORT INFORMATION
  Report Type: Report from Study
  Country: US (occurrence: US)
  Receive Date: 20220715
  Receipt Date: 20220715
  Transmission Date: 20221027
  Serious: Yes (Other)
  Sender: FDA-Public Use
  Company Number: US-BAYER-2022A075366

PATIENT
  Age: 64 Year
  Sex: Female

DRUGS (2)
  1. NEXAVAR [Suspect]
     Active Substance: SORAFENIB
     Indication: Desmoid tumour
     Dosage: 400 MG, QD ON EMPTY STOMACH
     Route: 048
     Dates: start: 20220517
  2. NEXAVAR [Suspect]
     Active Substance: SORAFENIB
     Indication: Desmoid tumour
     Dosage: UNK

REACTIONS (15)
  - Transient acantholytic dermatosis [Not Recovered/Not Resolved]
  - Hypertension [Recovering/Resolving]
  - Constipation [Recovered/Resolved]
  - Dyspepsia [Recovered/Resolved]
  - Fatigue [Not Recovered/Not Resolved]
  - Off label use [None]
  - Rash erythematous [Recovered/Resolved]
  - Pain in extremity [Not Recovered/Not Resolved]
  - Blister [Recovered/Resolved]
  - Diarrhoea [None]
  - Alopecia [None]
  - Vertigo [None]
  - Vomiting [None]
  - Biopsy [None]
  - Rash [Not Recovered/Not Resolved]

NARRATIVE: CASE EVENT DATE: 20220517
